FAERS Safety Report 10684912 (Version 1)
Quarter: 2014Q4

REPORT INFORMATION
  Report Type: Spontaneous
  Country: US (occurrence: US)
  Receive Date: 20141231
  Receipt Date: 20141231
  Transmission Date: 20150529
  Serious: Yes (Other)
  Sender: FDA-Public Use
  Company Number: US-ASTRAZENECA-2014SE98961

PATIENT
  Age: 80 Year
  Sex: Female
  Weight: 65.8 kg

DRUGS (3)
  1. PERFOROMIST [Concomitant]
     Active Substance: FORMOTEROL FUMARATE DIHYDRATE
     Indication: LUNG DISORDER
  2. PULMICORT RESPULES [Suspect]
     Active Substance: BUDESONIDE
     Indication: LUNG DISORDER
     Dosage: 0.5 MG/2 ML TWICE A DAY
     Route: 055
  3. SPIRIVA [Concomitant]
     Active Substance: TIOTROPIUM BROMIDE MONOHYDRATE
     Indication: LUNG DISORDER

REACTIONS (4)
  - Cataract [Not Recovered/Not Resolved]
  - Drug dose omission [Unknown]
  - Weight decreased [Unknown]
  - Intentional product misuse [Not Recovered/Not Resolved]

NARRATIVE: CASE EVENT DATE: 2014
